FAERS Safety Report 8585665 (Version 10)
Quarter: 2014Q3

REPORT INFORMATION
  Report Type: Spontaneous
  Country: US (occurrence: US)
  Receive Date: 20120530
  Receipt Date: 20140924
  Transmission Date: 20150326
  Serious: Yes (Life-Threatening, Hospitalization, Other)
  Sender: FDA-Public Use
  Company Number: US-GLAXOSMITHKLINE-A0966589A

PATIENT
  Age: 37 Year
  Sex: Female

DRUGS (5)
  1. TRACLEER [Concomitant]
     Active Substance: BOSENTAN\BOSENTAN MONOHYDRATE
  2. REVATIO [Concomitant]
     Active Substance: SILDENAFIL CITRATE
     Dosage: 40MG THREE TIMES PER DAY
  3. FLOLAN [Suspect]
     Active Substance: EPOPROSTENOL SODIUM
     Indication: PULMONARY ARTERIAL HYPERTENSION
     Dosage: 80NGKM CONTINUOUS
     Route: 042
     Dates: start: 20060626
  4. PENICILLIN [Suspect]
     Active Substance: PENICILLIN
     Indication: PRODUCT USED FOR UNKNOWN INDICATION
     Route: 065
  5. COUMADIN [Concomitant]
     Active Substance: WARFARIN SODIUM
     Dosage: 7.5MG PER DAY

REACTIONS (9)
  - Sinusitis [Unknown]
  - Sepsis [Recovered/Resolved]
  - Device leakage [Unknown]
  - Drug hypersensitivity [Unknown]
  - Infective tenosynovitis [Unknown]
  - Investigation [Unknown]
  - Dizziness [Unknown]
  - Localised infection [Unknown]
  - Hot flush [Unknown]

NARRATIVE: CASE EVENT DATE: 20120206
